FAERS Safety Report 9695661 (Version 1)
Quarter: 2013Q4

REPORT INFORMATION
  Report Type: Spontaneous
  Country: FR (occurrence: FR)
  Receive Date: 20131119
  Receipt Date: 20131119
  Transmission Date: 20140711
  Serious: Yes (Hospitalization)
  Sender: FDA-Public Use
  Company Number: FR-PFIZER INC-2013324771

PATIENT
  Age: 64 Year
  Sex: Male

DRUGS (1)
  1. FLUOROURACILE PFIZER [Suspect]
     Dosage: 2600 MG, CYCLIC
     Route: 042
     Dates: start: 20121210, end: 20130320

REACTIONS (1)
  - Cerebellar ataxia [Recovering/Resolving]
